FAERS Safety Report 20049351 (Version 1)
Quarter: 2021Q4

REPORT INFORMATION
  Report Type: Spontaneous
  Country: ES (occurrence: ES)
  Receive Date: 20211109
  Receipt Date: 20211109
  Transmission Date: 20220303
  Serious: Yes (Hospitalization, Other)
  Sender: FDA-Public Use
  Company Number: ES-ABBVIE-21K-144-4145554-00

PATIENT
  Age: 43 Year
  Sex: Female

DRUGS (6)
  1. VALPROATE SODIUM [Suspect]
     Active Substance: VALPROATE SODIUM
     Indication: Bipolar disorder
     Route: 065
  2. OLANZAPINE [Suspect]
     Active Substance: OLANZAPINE
     Indication: Bipolar disorder
     Route: 048
  3. AMISULPRIDE [Suspect]
     Active Substance: AMISULPRIDE
     Indication: Bipolar disorder
     Route: 065
  4. CLONAZEPAM [Suspect]
     Active Substance: CLONAZEPAM
     Indication: Bipolar disorder
     Route: 065
  5. LITHIUM CARBONATE [Suspect]
     Active Substance: LITHIUM CARBONATE
     Indication: Bipolar disorder
     Route: 065
  6. BIPERIDEN [Suspect]
     Active Substance: BIPERIDEN
     Indication: Bipolar disorder
     Route: 065

REACTIONS (2)
  - Treatment noncompliance [Recovered/Resolved]
  - Bipolar disorder [Recovered/Resolved]
